FAERS Safety Report 8519516-1 (Version None)
Quarter: 2012Q3

REPORT INFORMATION
  Report Type: 
  Country: None (occurrence: None)
  Receive Date: 20120718
  Receipt Date: 20120713
  Transmission Date: 20120928
  Serious: Yes (Hospitalization)
  Sender: FDA-Public Use
  Company Number: US-CELGENEUS-163-21880-12063898

PATIENT
  Sex: Female

DRUGS (3)
  1. REVLIMID [Suspect]
     Dosage: 10MG-15MG
     Route: 048
     Dates: start: 20101101
  2. REVLIMID [Suspect]
     Indication: MULTIPLE MYELOMA
     Dosage: 25 MILLIGRAM
     Route: 048
     Dates: start: 20081101
  3. REVLIMID [Suspect]
     Dosage: 10 MILLIGRAM
     Route: 048
     Dates: start: 20110801

REACTIONS (2)
  - FURUNCLE [None]
  - UNEVALUABLE EVENT [None]
